FAERS Safety Report 7954510-0 (Version None)
Quarter: 2011Q4

REPORT INFORMATION
  Report Type: 
  Country: None (occurrence: None)
  Receive Date: 20111202
  Receipt Date: 20111118
  Transmission Date: 20120403
  Serious: Yes (Other)
  Sender: FDA-Public Use
  Company Number: PHHY2011JP13462

PATIENT
  Sex: Male

DRUGS (9)
  1. TASIGNA [Suspect]
     Dosage: 400 MG, UNK
     Route: 048
     Dates: start: 20091116, end: 20100104
  2. TASIGNA [Suspect]
     Dosage: 800 MG, UNK
     Route: 048
     Dates: start: 20100105, end: 20100228
  3. TASIGNA [Suspect]
     Dosage: 200 MG, UNK
     Route: 048
     Dates: start: 20100315, end: 20100328
  4. TASIGNA [Suspect]
     Dosage: 800 MG, UNK
     Route: 048
     Dates: start: 20100729, end: 20100809
  5. TASIGNA [Suspect]
     Dosage: 200 MG, UNK
     Route: 048
     Dates: start: 20091026, end: 20091115
  6. TASIGNA [Suspect]
     Dosage: 600 MG, UNK
     Route: 048
     Dates: start: 20100811
  7. TASIGNA [Suspect]
     Indication: CHRONIC MYELOID LEUKAEMIA
     Dosage: 800 MG, UNK
     Route: 048
     Dates: start: 20090919, end: 20091003
  8. TASIGNA [Suspect]
     Dosage: 400 MG, UNK
     Route: 048
     Dates: start: 20100329, end: 20100509
  9. TASIGNA [Suspect]
     Dosage: 600 MG, UNK
     Route: 048
     Dates: start: 20100510, end: 20100728

REACTIONS (1)
  - BLOOD BILIRUBIN INCREASED [None]
